FAERS Safety Report 24353558 (Version 1)
Quarter: 2024Q3

REPORT INFORMATION
  Report Type: Spontaneous
  Country: US (occurrence: US)
  Receive Date: 20240923
  Receipt Date: 20240923
  Transmission Date: 20241016
  Serious: No
  Sender: PFIZER
  Company Number: US-PFIZER INC-PV202400123186

PATIENT
  Age: 65 Year
  Sex: Female

DRUGS (3)
  1. TUKYSA [Interacting]
     Active Substance: TUCATINIB
     Dosage: 150 MG
     Dates: end: 2021
  2. TUKYSA [Interacting]
     Active Substance: TUCATINIB
     Dosage: 150MG 2 TABLETS TWICE DAILY
  3. OXYCODONE [Interacting]
     Active Substance: OXYCODONE
     Dosage: UNK

REACTIONS (2)
  - Pain [Unknown]
  - Drug interaction [Unknown]
